FAERS Safety Report 17361994 (Version 3)
Quarter: 2020Q1

REPORT INFORMATION
  Report Type: Spontaneous
  Country: CH (occurrence: CH)
  Receive Date: 20200203
  Receipt Date: 20200207
  Transmission Date: 20200409
  Serious: Yes (Hospitalization, Other)
  Sender: FDA-Public Use
  Company Number: CH-PFIZER INC-2020045158

PATIENT
  Age: 31 Year
  Sex: Female

DRUGS (6)
  1. NOVALGIN (METAMIZOLE SODIUM) [Suspect]
     Active Substance: METAMIZOLE SODIUM
     Dosage: UNK MILLIGRAM
     Route: 048
     Dates: start: 201909, end: 201910
  2. DAFALGAN [Suspect]
     Active Substance: ACETAMINOPHEN
     Dosage: 1 GRAM, TID
     Route: 048
     Dates: start: 201909, end: 20191021
  3. IRFEN [Suspect]
     Active Substance: IBUPROFEN
     Dosage: 400 MILLIGRAM, TID
     Route: 048
     Dates: start: 201909, end: 20191021
  4. OCREVUS [Suspect]
     Active Substance: OCRELIZUMAB
     Indication: RELAPSING MULTIPLE SCLEROSIS
     Dosage: 300 MILLIGRAM
     Route: 041
     Dates: start: 20180614
  5. PANTOZOL [Suspect]
     Active Substance: PANTOPRAZOLE SODIUM
     Dosage: 40 MILLIGRAM, QD
     Route: 048
     Dates: start: 201909, end: 201910
  6. MAGNESIUM DIASPORAL [MAGNESIUM] [Concomitant]
     Dosage: UNK

REACTIONS (2)
  - Agranulocytosis [Recovered/Resolved]
  - Encephalitis [Recovering/Resolving]

NARRATIVE: CASE EVENT DATE: 201910
